FAERS Safety Report 12346311 (Version 1)
Quarter: 2016Q2

REPORT INFORMATION
  Report Type: Spontaneous
  Country: US (occurrence: None)
  Receive Date: 20160506
  Receipt Date: 20160506
  Transmission Date: 20160815
  Serious: No
  Sender: FDA-Public Use
  Company Number: None

PATIENT
  Age: 34 Year
  Sex: Female
  Weight: 89.36 kg

DRUGS (5)
  1. VENLAFAXINE 75MG [Suspect]
     Active Substance: VENLAFAXINE HYDROCHLORIDE
     Indication: DEPRESSION
  2. FLONASE [Concomitant]
     Active Substance: FLUTICASONE PROPIONATE
  3. ZYRTEX [Concomitant]
  4. LUTERA [Concomitant]
     Active Substance: ETHINYL ESTRADIOL\LEVONORGESTREL
     Indication: ANXIETY
  5. LORAZEPAN [Concomitant]
     Active Substance: LORAZEPAM

REACTIONS (5)
  - Diarrhoea [None]
  - Paraesthesia [None]
  - Nausea [None]
  - Dizziness [None]
  - Head discomfort [None]

NARRATIVE: CASE EVENT DATE: 20160501
